FAERS Safety Report 7587560-7 (Version None)
Quarter: 2011Q3

REPORT INFORMATION
  Report Type: 
  Country: None (occurrence: None)
  Receive Date: 20110704
  Receipt Date: 20110620
  Transmission Date: 20111222
  Serious: Yes (Hospitalization, Other)
  Sender: FDA-Public Use
  Company Number: PHHY2011JP56215

PATIENT
  Sex: Female

DRUGS (6)
  1. AMARYL [Concomitant]
     Dosage: 1 MG, UNK
     Route: 048
     Dates: start: 20091016, end: 20100709
  2. VOGLIBOSE [Concomitant]
     Dosage: 0.9 MG, UNK
     Route: 048
     Dates: start: 20090319, end: 20100709
  3. ASCATE [Concomitant]
     Dosage: 300 MG, UNK
     Route: 048
     Dates: start: 20100406, end: 20100709
  4. DIOVAN HCT [Suspect]
     Indication: HYPERTENSION
     Dosage: 1 DF ONCE DAILY
     Route: 048
     Dates: start: 20100406, end: 20100709
  5. ALFAROL [Concomitant]
     Dosage: 0.5 UG, UNK
     Route: 048
     Dates: start: 20090319, end: 20100709
  6. ASPIRIN [Concomitant]
     Dosage: 100 MG, UNK
     Route: 048
     Dates: start: 20090319, end: 20100709

REACTIONS (6)
  - HYPONATRAEMIA [None]
  - DEHYDRATION [None]
  - HYPERURICAEMIA [None]
  - HYPOCHLORAEMIA [None]
  - RENAL IMPAIRMENT [None]
  - CEREBRAL INFARCTION [None]
